FAERS Safety Report 7331325-8 (Version None)
Quarter: 2011Q1

REPORT INFORMATION
  Report Type: 
  Country: None (occurrence: None)
  Receive Date: 20110228
  Receipt Date: 20110228
  Transmission Date: 20110831
  Serious: Yes (Other)
  Sender: FDA-Public Use
  Company Number: None

PATIENT
  Sex: Female

DRUGS (1)
  1. PRED FORTE [Suspect]
     Indication: IRITIS
     Dosage: 1 DROP VARIES EYE
     Route: 047
     Dates: start: 20101215

REACTIONS (1)
  - IRITIS [None]
